FAERS Safety Report 19201652 (Version 2)
Quarter: 2021Q2

REPORT INFORMATION
  Report Type: Other
  Country: IT (occurrence: IT)
  Receive Date: 20210430
  Receipt Date: 20210507
  Transmission Date: 20210717
  Serious: Yes (Other)
  Sender: FDA-Public Use
  Company Number: IT-APOTEX-2021AP010814

PATIENT

DRUGS (1)
  1. EUTIMIL [Suspect]
     Active Substance: PAROXETINE HYDROCHLORIDE
     Indication: DRUG ABUSE
     Dosage: 200 MILLIGRAM (CUMULATIVE DOSE OF EUTMIL  WAS REPORTED AS 200 MG)
     Route: 048
     Dates: start: 20210211, end: 20210211

REACTIONS (3)
  - Drug abuse [Recovering/Resolving]
  - Poisoning [Recovering/Resolving]
  - Abdominal pain [Recovering/Resolving]

NARRATIVE: CASE EVENT DATE: 20210211
